FAERS Safety Report 11665010 (Version 1)
Quarter: 2015Q4

REPORT INFORMATION
  Report Type: Spontaneous
  Country: US (occurrence: US)
  Receive Date: 20151027
  Receipt Date: 20151027
  Transmission Date: 20160304
  Serious: No
  Sender: FDA-Public Use
  Company Number: US-ELI_LILLY_AND_COMPANY-US200912002641

PATIENT
  Age: 79 Year
  Sex: Female

DRUGS (2)
  1. FORTEO [Suspect]
     Active Substance: TERIPARATIDE
     Indication: OSTEOPOROSIS
     Dosage: 20 UG, DAILY (1/D)
     Dates: start: 20090605
  2. VITAMIN D [Concomitant]
     Active Substance: CHOLECALCIFEROL
     Dosage: UNK, UNKNOWN

REACTIONS (12)
  - Fall [Unknown]
  - Memory impairment [Unknown]
  - Chest pain [Not Recovered/Not Resolved]
  - Hypoacusis [Unknown]
  - Hypokinesia [Unknown]
  - Pain in extremity [Unknown]
  - Malaise [Not Recovered/Not Resolved]
  - Musculoskeletal stiffness [Unknown]
  - Injection site pain [Unknown]
  - Pain [Unknown]
  - Injection site bruising [Unknown]
  - Gait disturbance [Unknown]

NARRATIVE: CASE EVENT DATE: 2009
